FAERS Safety Report 8808705 (Version 1)
Quarter: 2012Q4

REPORT INFORMATION
  Report Type: 
  Country: DE (occurrence: DE)
  Receive Date: 20120926
  Receipt Date: 20120926
  Transmission Date: 20130627
  Serious: Yes (Hospitalization, Other)
  Sender: FDA-Public Use
  Company Number: DE-UCBSA-063272

PATIENT
  Age: 18 Year
  Sex: Male

DRUGS (50)
  1. VIMPAT [Suspect]
     Indication: EPILEPSY
     Dosage: 200, 1-0-1
     Dates: start: 201012
  2. VIMPAT [Interacting]
     Indication: EPILEPSY
     Dates: start: 20110115
  3. VIMPAT [Interacting]
     Indication: EPILEPSY
     Dates: start: 201103
  4. KEPPRA [Suspect]
     Dates: start: 200607
  5. KEPPRA [Suspect]
     Dosage: DAILY DOSE 3000 1-0-1
     Dates: start: 201012
  6. KEPPRA [Suspect]
     Dates: start: 201101
  7. KEPPRA [Suspect]
     Dates: start: 201103
  8. NPLATE [Interacting]
     Indication: AUTOIMMUNE THROMBOCYTOPENIA
     Dosage: 0.9 - 1.0 ML
     Route: 058
     Dates: start: 201004
  9. NPLATE [Interacting]
     Indication: AUTOIMMUNE THROMBOCYTOPENIA
     Dosage: READJUSTMENT OF NPLATE DOSAGE (4?g/KG/WEEK)
     Route: 058
     Dates: start: 201010
  10. NPLATE [Interacting]
     Indication: AUTOIMMUNE THROMBOCYTOPENIA
     Dosage: 3?g/KG/WEEK
     Route: 058
     Dates: start: 201011, end: 20110112
  11. NPLATE [Interacting]
     Indication: AUTOIMMUNE THROMBOCYTOPENIA
     Route: 058
     Dates: start: 201109
  12. NPLATE [Interacting]
     Indication: AUTOIMMUNE THROMBOCYTOPENIA
     Dosage: 2x1.0 ML/ WEEK
     Route: 058
     Dates: start: 201112
  13. TRILEPTAL [Concomitant]
  14. TRILEPTAL [Concomitant]
     Dosage: DOSE: 600 1-0-1
  15. L-THYROXIN [Concomitant]
     Dosage: 25, 1-0-0
  16. L-THYROXIN [Concomitant]
     Dosage: DOSE: 50 1/2-0-0
     Dates: start: 201010
  17. L-THYROXIN [Concomitant]
     Dosage: DAILY DOSE: 25
  18. L-THYROXIN [Concomitant]
     Dates: end: 201103
  19. TOPAMAX [Concomitant]
     Dosage: 1 1/2 TWICE DAILY
  20. TOPAMAX [Concomitant]
     Dosage: DAILY DOSE: 400
     Dates: start: 201010
  21. TOPAMAX [Concomitant]
     Dosage: 100, 1? -0-1?
     Dates: end: 201010
  22. PREDNISONE [Concomitant]
     Dosage: 5 MG
     Dates: start: 20060927
  23. PREDNISONE [Concomitant]
     Dosage: 2 MG/KG
     Dates: start: 20110213
  24. VENIMMUNE [Concomitant]
     Dosage: DOSE: 40 GRAM
  25. FRISIUM [Concomitant]
     Dates: start: 200607
  26. FRISIUM [Concomitant]
     Dosage: DAILY DOSE: 25 MG; 10-0-15 MG
     Dates: end: 201103
  27. PREDNISOLONE [Concomitant]
     Dates: start: 200607
  28. PREDNISOLONE [Concomitant]
     Dosage: DOSE:10 MG
  29. PREDNISOLONE [Concomitant]
     Dosage: DOSE:100 MG
     Dates: start: 200708
  30. LYRICA [Concomitant]
     Dosage: FREQUENCY:75-75-100 mg
     Dates: start: 201010
  31. CORTISONE [Concomitant]
     Dosage: APPROXIMATELY 20 MG PER DAY
     Dates: start: 200808
  32. CORTISONE [Concomitant]
     Dosage: DOSE 40 MG
  33. TIMOX [Concomitant]
     Dosage: 300, 4-0-4
     Dates: end: 201010
  34. ZEBINIX [Concomitant]
     Dosage: DOSE:800, 1? -0-2
     Dates: start: 201010
  35. PENICILLIN [Concomitant]
     Indication: PROPHYLAXIS
     Dosage: 2 X 600 MEGA PER DAY
     Dates: start: 20060927, end: 200902
  36. MEGACILLINE [Concomitant]
     Dates: start: 200708
  37. PRIMIDONE [Concomitant]
     Dates: start: 201011
  38. DECORTIN [Concomitant]
     Dosage: DOSE:50 MG
     Dates: start: 200708
  39. PRIVIGEN [Concomitant]
     Dosage: 3X10 MG
     Dates: start: 201007
  40. PRIVIGEN [Concomitant]
     Dosage: 30 GRAM OVER 5 DAYS
     Dates: start: 20110127
  41. ZOPICLON [Concomitant]
     Dosage: 0-0-1
     Dates: start: 201012
  42. ZOPICLON [Concomitant]
     Dates: start: 201101
  43. PHENHYDAN [Concomitant]
     Dosage: DAILY DOSE 100 1-1-1
     Dates: start: 201012
  44. PHENHYDAN [Concomitant]
     Dates: start: 201101
  45. DEXAMETHASONE [Concomitant]
     Dosage: DAILY DOSE: 40 MG FOR FOUR DAYS
     Dates: start: 20110311
  46. BERLTHYROX [Concomitant]
     Dosage: DAILY DOSE 25 1-0-0
     Dates: start: 201012
  47. TRANXILIUM [Concomitant]
     Dosage: DAILY DOSE:25 MG, 10-0-15MG
     Dates: start: 201103
  48. ANTELEPSIN [Concomitant]
     Dosage: DAILY DOSE: 1.5 1-1-0
     Dates: start: 201012
  49. RITUXIMAB [Concomitant]
     Dates: start: 201103
  50. ELTHROMBOPAQ [Concomitant]
     Dates: start: 201108

REACTIONS (14)
  - Bone marrow reticulin fibrosis [Unknown]
  - Thrombocytopenia [Not Recovered/Not Resolved]
  - Wound dehiscence [Unknown]
  - Intestinal prolapse [Unknown]
  - Faecaloma [Unknown]
  - Volvulus [Unknown]
  - Fall [Unknown]
  - Laceration [Unknown]
  - Mucous membrane disorder [Unknown]
  - Abdominal wall haematoma [Unknown]
  - Convulsion [Not Recovered/Not Resolved]
  - Helicobacter gastritis [Unknown]
  - Drug interaction [Recovered/Resolved]
  - Overdose [Unknown]
